FAERS Safety Report 23411621 (Version 2)
Quarter: 2024Q1

REPORT INFORMATION
  Report Type: Spontaneous
  Country: DE (occurrence: DE)
  Receive Date: 20240117
  Receipt Date: 20240301
  Transmission Date: 20240409
  Serious: Yes (Other)
  Sender: FDA-Public Use
  Company Number: DE-PFIZER INC-202300392971

PATIENT
  Age: 58 Year
  Sex: Female
  Weight: 77 kg

DRUGS (5)
  1. CANDESARTAN [Suspect]
     Active Substance: CANDESARTAN
     Indication: Hypertension
     Dosage: 8 MILLIGRAM
     Route: 048
     Dates: start: 2017, end: 202311
  2. AZULFIDINE [Suspect]
     Active Substance: SULFASALAZINE
     Indication: Rheumatoid arthritis
     Dosage: QD (2X/DAY(2-0-2))
     Route: 065
     Dates: start: 202207, end: 202310
  3. AZULFIDINE [Suspect]
     Active Substance: SULFASALAZINE
     Dosage: QD (2X/DAY(2-0-1))
     Route: 065
     Dates: start: 202310
  4. PREDNISOLONE [Concomitant]
     Active Substance: PREDNISOLONE
     Dosage: 2 DOSAGE FORM, QD (1X/DAY, 2-0-0)
     Route: 065
     Dates: start: 202311
  5. LEVOTHYROXINE SODIUM [Concomitant]
     Active Substance: LEVOTHYROXINE SODIUM
     Dosage: 1 DOSAGE FORM, QD (DAILY)
     Route: 065

REACTIONS (1)
  - Erythema multiforme [Recovering/Resolving]
